FAERS Safety Report 5157627-1 (Version None)
Quarter: 2006Q4

REPORT INFORMATION
  Report Type: 
  Country: None (occurrence: None)
  Receive Date: 20061127
  Receipt Date: 20061120
  Transmission Date: 20070319
  Serious: Yes (Other)
  Sender: FDA-Public Use
  Company Number: US-KINGPHARMUSA00001-K200601494

PATIENT
  Age: 56 Year
  Sex: Male

DRUGS (7)
  1. ALTACE [Suspect]
     Indication: HYPERTENSION
     Dosage: 5 MG, QD
     Route: 048
     Dates: start: 20050415, end: 20050428
  2. ALTACE [Suspect]
     Dosage: 10 MG, QD
     Route: 048
     Dates: start: 20050429
  3. IPOREL [Concomitant]
     Dosage: 3 TABS, QD
  4. LACIPIL [Concomitant]
     Dosage: 4 MG, UNK
  5. AMARYL [Concomitant]
     Dosage: 4 MG, UNK
  6. TICLODIPINE [Concomitant]
     Dosage: 500 MG, UNK
  7. MILURIT [Concomitant]
     Dosage: 300 MG, UNK

REACTIONS (1)
  - BRADYCARDIA [None]
